FAERS Safety Report 8171393-7 (Version None)
Quarter: 2012Q1

REPORT INFORMATION
  Report Type: 
  Country: None (occurrence: None)
  Receive Date: 20120228
  Receipt Date: 20120228
  Transmission Date: 20120608
  Serious: Yes (Hospitalization, Other)
  Sender: FDA-Public Use
  Company Number: NZ-PFIZER INC-2012008565

PATIENT
  Age: 62 Year
  Sex: Female

DRUGS (9)
  1. THIAMINE [Concomitant]
     Indication: VITAMIN B1
     Dosage: 50 MG, 1X/DAY
     Route: 048
     Dates: start: 20090101
  2. CLINDAMYCIN HCL [Suspect]
     Indication: INFECTION
     Dosage: 1 DF, 2X/DAY
     Route: 048
     Dates: start: 20120107, end: 20120108
  3. ATORVASTATIN [Concomitant]
  4. CLINDAMYCIN HCL [Suspect]
     Indication: DENTAL OPERATION
     Dosage: 600 MG INITIAL DOSE
     Route: 048
     Dates: start: 20120105, end: 20120105
  5. FELODIPINE [Concomitant]
     Dosage: 10 MG, 1X/DAY
     Route: 048
     Dates: start: 20080101
  6. PYRIDOXINE [Concomitant]
     Indication: VITAMIN B6
     Dosage: 50 MG, 1X/DAY
     Route: 048
     Dates: start: 20090101
  7. LOSARTAN POTASSIUM AND HYDROCHLOROTHIAZIDE [Concomitant]
     Indication: BLOOD PRESSURE
     Dosage: 50/12.5MG IN THE MORNING
     Route: 048
     Dates: start: 20080101
  8. METOPROLOL TARTRATE [Concomitant]
     Indication: BLOOD PRESSURE
     Dosage: 95 MG, 1X/DAY
     Route: 048
     Dates: start: 20070101
  9. ASPIRIN [Concomitant]
     Dosage: 100 MG, 1X/DAY
     Route: 048
     Dates: start: 20080101

REACTIONS (11)
  - ANXIETY [None]
  - CONVERSION DISORDER [None]
  - TEARFULNESS [None]
  - HEADACHE [None]
  - VISUAL IMPAIRMENT [None]
  - DECREASED APPETITE [None]
  - DERMATITIS ALLERGIC [None]
  - EMOTIONAL DISORDER [None]
  - BACK PAIN [None]
  - PALLOR [None]
  - NAUSEA [None]
